FAERS Safety Report 4552771-1 (Version None)
Quarter: 2005Q1

REPORT INFORMATION
  Report Type: 
  Country: None (occurrence: None)
  Receive Date: 20050111
  Receipt Date: 20050111
  Transmission Date: 20050727
  Serious: Yes (Other)
  Sender: FDA-Public Use
  Company Number: None

PATIENT
  Sex: Female
  Weight: 65.5448 kg

DRUGS (8)
  1. TAXOL [Suspect]
     Indication: SMALL CELL LUNG CANCER STAGE UNSPECIFIED
     Dosage: 75 MG/M2 IV WEEKLY X 2
     Route: 042
     Dates: start: 20041213, end: 20050110
  2. CAMPTOSAR [Suspect]
     Indication: SMALL CELL LUNG CANCER STAGE UNSPECIFIED
     Dosage: 50 MG/M2 IV WEEKLY X 2
     Route: 042
     Dates: start: 20041213, end: 20050110
  3. TOPROLOL [Concomitant]
  4. PREVACID [Concomitant]
  5. PAXIL [Concomitant]
  6. OXYCODONE HCL [Concomitant]
  7. PRINIVIL [Concomitant]
  8. ALLEGRA [Concomitant]

REACTIONS (3)
  - CONDITION AGGRAVATED [None]
  - DRUG TOXICITY [None]
  - HYPONATRAEMIA [None]
